FAERS Safety Report 4412057-2 (Version None)
Quarter: 2004Q3

REPORT INFORMATION
  Report Type: 
  Country: None (occurrence: None)
  Receive Date: 20040727
  Receipt Date: 20040716
  Transmission Date: 20050211
  Serious: Yes (Hospitalization)
  Sender: FDA-Public Use
  Company Number: 01P-087-0109410-00

PATIENT
  Age: 17 Year
  Sex: Male

DRUGS (15)
  1. NORVIR [Suspect]
     Indication: HIV INFECTION
     Dosage: SEE IMAGE
     Route: 048
     Dates: start: 19991101, end: 20001113
  2. NORVIR [Suspect]
     Indication: HIV INFECTION
     Dosage: SEE IMAGE
     Route: 048
     Dates: start: 20030227, end: 20030312
  3. SAQUINAVIR [Suspect]
     Indication: HIV INFECTION
     Dosage: 800  MG, 1 IN 1 D, PER ORAL
     Route: 048
     Dates: start: 19991101, end: 20001113
  4. SAQUINAVIR [Suspect]
     Indication: HIV INFECTION
     Dosage: 800  MG, 1 IN 1 D, PER ORAL
     Route: 048
     Dates: start: 20030227, end: 20030312
  5. DIDANOSINE [Suspect]
     Indication: HIV INFECTION
     Dosage: PER ORAL
     Route: 048
     Dates: start: 19991101, end: 20000502
  6. STAVUDINE [Suspect]
     Indication: HIV INFECTION
     Dosage: 80 MG, 1 IN 1 D, PER ORAL
     Route: 048
     Dates: start: 19991101, end: 20020920
  7. LAMIVUDINE [Suspect]
     Indication: HIV INFECTION
     Dosage: 300 MG, 1 IN 1 D, ORAL
     Route: 048
     Dates: start: 20000628, end: 20020920
  8. EFAVIRENZ [Suspect]
     Indication: HIV INFECTION
     Dosage: 600 MG, PER ORAL
     Route: 048
     Dates: start: 20001114, end: 20020920
  9. BACTRIM [Concomitant]
  10. FLUCONAZOLE [Concomitant]
  11. LOXOPROFEN SODIUM [Concomitant]
  12. TEPRENONE [Concomitant]
  13. MENATETRENONE [Concomitant]
  14. CARBAZOCHROME SODIUM SULFONATE [Concomitant]
  15. ZIDOVUDINE [Concomitant]

REACTIONS (5)
  - CHOLANGITIS [None]
  - DIABETES MELLITUS INSULIN-DEPENDENT [None]
  - HYPERLIPIDAEMIA [None]
  - JAUNDICE CHOLESTATIC [None]
  - PANCREATITIS HAEMORRHAGIC [None]
